FAERS Safety Report 9743822 (Version 1)
Quarter: 2013Q4

REPORT INFORMATION
  Report Type: Spontaneous
  Country: US (occurrence: US)
  Receive Date: 20131210
  Receipt Date: 20131210
  Transmission Date: 20140711
  Serious: Yes (Hospitalization, Other)
  Sender: FDA-Public Use
  Company Number: US-TEVA-381539USA

PATIENT
  Age: 24 Year
  Sex: Female
  Weight: 79.45 kg

DRUGS (2)
  1. PARAGARD 380A [Suspect]
     Indication: CONTRACEPTION
     Route: 015
     Dates: start: 200805, end: 20130108
  2. SUBOXONE [Concomitant]
     Indication: WITHDRAWAL SYNDROME
     Dates: start: 201211

REACTIONS (6)
  - Embedded device [Not Recovered/Not Resolved]
  - Dyspareunia [Unknown]
  - Pelvic pain [Not Recovered/Not Resolved]
  - Menorrhagia [Unknown]
  - Menstruation irregular [Unknown]
  - Medical device complication [Unknown]
